FAERS Safety Report 25145723 (Version 1)
Quarter: 2025Q2

REPORT INFORMATION
  Report Type: Spontaneous
  Country: CN (occurrence: CN)
  Receive Date: 20250401
  Receipt Date: 20250401
  Transmission Date: 20250716
  Serious: Yes (Hospitalization)
  Sender: PFIZER
  Company Number: CN-PFIZER INC-PV202500037593

PATIENT
  Age: 50 Year
  Sex: Male
  Weight: 60 kg

DRUGS (2)
  1. METHOTREXATE SODIUM [Suspect]
     Active Substance: METHOTREXATE SODIUM
     Indication: B-cell lymphoma
     Dosage: 6 G, 1X/DAY
     Route: 041
     Dates: start: 20250314, end: 20250314
  2. SODIUM CHLORIDE [Concomitant]
     Active Substance: SODIUM CHLORIDE
     Indication: Vehicle solution use
     Dosage: 1000 ML, 1X/DAY
     Route: 041
     Dates: start: 20250314, end: 20250314

REACTIONS (2)
  - Renal failure [Recovering/Resolving]
  - Laryngeal ulceration [Recovering/Resolving]

NARRATIVE: CASE EVENT DATE: 20250320
